FAERS Safety Report 25067160 (Version 1)
Quarter: 2025Q1

REPORT INFORMATION
  Report Type: Spontaneous
  Country: SE (occurrence: SE)
  Receive Date: 20250312
  Receipt Date: 20250312
  Transmission Date: 20250408
  Serious: Yes (Other)
  Sender: REGENERON
  Company Number: SE-BAYER-2025A026155

PATIENT
  Age: 74 Year
  Sex: Male

DRUGS (1)
  1. EYLEA HD [Suspect]
     Active Substance: AFLIBERCEPT
     Indication: Diabetic retinal oedema
     Route: 031
     Dates: start: 20241227

REACTIONS (9)
  - Corneal opacity [Recovering/Resolving]
  - Bacterial endophthalmitis [Recovering/Resolving]
  - Hypopyon [Recovering/Resolving]
  - Anterior chamber inflammation [Recovering/Resolving]
  - Visual acuity reduced [Recovered/Resolved]
  - Eye pain [Recovering/Resolving]
  - Vision blurred [Recovering/Resolving]
  - Ocular hyperaemia [Recovering/Resolving]
  - Multiple use of single-use product [Unknown]

NARRATIVE: CASE EVENT DATE: 20250101
